FAERS Safety Report 14202908 (Version 1)
Quarter: 2017Q4

REPORT INFORMATION
  Report Type: Spontaneous
  Country: US (occurrence: None)
  Receive Date: 20171116
  Receipt Date: 20171116
  Transmission Date: 20180321
  Serious: No
  Sender: FDA-Public Use
  Company Number: None

PATIENT
  Sex: Male

DRUGS (1)
  1. IMATINIB MESYLATE 100MG RANBAXY [Suspect]
     Active Substance: IMATINIB MESYLATE
     Indication: POLYCYTHAEMIA
     Route: 048
     Dates: start: 20170922

REACTIONS (1)
  - Renal impairment [None]
